FAERS Safety Report 8254742 (Version 4)
Quarter: 2012Q4

REPORT INFORMATION
  Report Type: Report from Study
  Country: NL (occurrence: NL)
  Receive Date: 20111118
  Receipt Date: 20120917
  Transmission Date: 20130627
  Serious: Yes (Hospitalization)
  Sender: FDA-Public Use
  Company Number: NL-JNJFOC-20111104120

PATIENT
  Age: 13 Year
  Sex: Male
  Weight: 52.9 kg

DRUGS (5)
  1. REMICADE [Suspect]
     Indication: CROHN^S DISEASE
     Route: 042
     Dates: start: 20100415, end: 20101223
  2. HUMIRA [Suspect]
     Indication: CROHN^S DISEASE
     Dates: start: 20111005
  3. HUMIRA [Suspect]
     Indication: CROHN^S DISEASE
     Dates: start: 20120111
  4. HUMIRA [Suspect]
     Indication: CROHN^S DISEASE
  5. 5-ASA [Suspect]
     Indication: PRODUCT USED FOR UNKNOWN INDICATION
     Route: 048

REACTIONS (1)
  - Crohn^s disease [Recovered/Resolved]
